FAERS Safety Report 5761497-8 (Version None)
Quarter: 2008Q2

REPORT INFORMATION
  Report Type: 
  Country: None (occurrence: None)
  Receive Date: 20080606
  Receipt Date: 20080512
  Transmission Date: 20081010
  Serious: No
  Sender: FDA-Public Use
  Company Number: JP-BOEHRINGER INGELHEIM GMBH, GERMANY-2008-BP-06545NB

PATIENT
  Sex: Male

DRUGS (8)
  1. SPIRIVA [Suspect]
     Indication: EMPHYSEMA
     Route: 055
     Dates: start: 20050111
  2. MICARDIS [Concomitant]
     Route: 048
     Dates: start: 20040428
  3. FAMOTIDINE [Concomitant]
     Route: 048
     Dates: start: 20050808
  4. MEILAX [Concomitant]
     Route: 048
     Dates: start: 20050808
  5. MARSULENE-S (SODIUM AZULENE SULFONATE_L-GLUTAMINE) [Concomitant]
     Route: 048
     Dates: start: 20050906
  6. URSO 250 [Concomitant]
     Route: 048
  7. SUPACAL [Concomitant]
     Route: 048
  8. TAMSULOSIN HCL [Concomitant]
     Route: 048

REACTIONS (2)
  - FALL [None]
  - VISUAL DISTURBANCE [None]
